FAERS Safety Report 17889774 (Version 2)
Quarter: 2022Q4

REPORT INFORMATION
  Report Type: Spontaneous
  Country: US (occurrence: US)
  Receive Date: 20200612
  Receipt Date: 20221202
  Transmission Date: 20230112
  Serious: Yes (Hospitalization)
  Sender: FDA-Public Use
  Company Number: US-MYLANLABS-2020M1055746

PATIENT
  Age: 75 Year
  Sex: Female

DRUGS (2)
  1. HEPARIN [Suspect]
     Active Substance: HEPARIN SODIUM
     Indication: Thrombosis prophylaxis
     Dosage: UNFRACTIONATED HEPARIN, 5000 INTERNATIONAL UNIT, TID
     Route: 058
  2. HEPARIN [Suspect]
     Active Substance: HEPARIN SODIUM
     Indication: Deep vein thrombosis
     Dosage: CONTINUOUS HEPARIN DRIP, INFUSION
     Route: 042

REACTIONS (6)
  - Cerebral artery occlusion [Recovered/Resolved]
  - Heparin-induced thrombocytopenia [Recovered/Resolved]
  - Cerebral artery embolism [Recovered/Resolved]
  - Embolic stroke [Unknown]
  - Ischaemic stroke [Unknown]
  - Drug ineffective [Unknown]
